FAERS Safety Report 9393327 (Version 1)
Quarter: 2013Q3

REPORT INFORMATION
  Report Type: Spontaneous
  Country: US (occurrence: US)
  Receive Date: 20130710
  Receipt Date: 20130710
  Transmission Date: 20140515
  Serious: No
  Sender: FDA-Public Use
  Company Number: US-TEVA-417989USA

PATIENT
  Age: 9 Year
  Sex: Female
  Weight: 36.32 kg

DRUGS (3)
  1. PROAIR HFA [Suspect]
     Indication: ASTHMA
     Route: 055
  2. SINGULAIR [Concomitant]
     Indication: ASTHMA
  3. ADVAIR [Concomitant]
     Indication: ASTHMA

REACTIONS (2)
  - Asthma [Unknown]
  - Inappropriate schedule of drug administration [Unknown]
